FAERS Safety Report 7735630-2 (Version None)
Quarter: 2011Q3

REPORT INFORMATION
  Report Type: 
  Country: None (occurrence: None)
  Receive Date: 20110907
  Receipt Date: 20110823
  Transmission Date: 20111222
  Serious: Yes (Other)
  Sender: FDA-Public Use
  Company Number: BD-GENENTECH-323695

PATIENT
  Age: 62 Year
  Sex: Female

DRUGS (1)
  1. XOLAIR [Suspect]
     Indication: ASTHMA
     Dosage: UNK
     Route: 042
     Dates: start: 20100428, end: 20100512

REACTIONS (2)
  - CONVULSION [None]
  - INCORRECT ROUTE OF DRUG ADMINISTRATION [None]
